FAERS Safety Report 4829800-0 (Version None)
Quarter: 2005Q4

REPORT INFORMATION
  Report Type: 
  Country: None (occurrence: None)
  Receive Date: 20051028
  Receipt Date: 20050713
  Transmission Date: 20060501
  Serious: No
  Sender: FDA-Public Use
  Company Number: COT_0136_2005

PATIENT
  Age: 27 Year
  Sex: Female

DRUGS (13)
  1. VENTAVIS [Suspect]
     Indication: PULMONARY HYPERTENSION
     Dosage: 5 MCG 6XD IH
     Route: 055
     Dates: start: 20050623, end: 20050723
  2. VENTAVIS [Suspect]
     Indication: PULMONARY HYPERTENSION
     Dosage: 5 MCG 6XD IH
     Route: 055
     Dates: start: 20050623, end: 20050713
  3. PREDNISONE [Suspect]
     Indication: ASTHMA
     Dosage: 25 MG QDAY
     Dates: start: 20050101
  4. TRACLEER [Concomitant]
  5. AMBIEN [Concomitant]
  6. TOPAMAX [Concomitant]
  7. MULTI-VITAMIN [Concomitant]
  8. ADVAIR DISKUS 100/50 [Concomitant]
  9. POTASSIUM [Concomitant]
  10. LASIX [Concomitant]
  11. OXYGEN [Concomitant]
  12. FLOVENT [Concomitant]
  13. ALBUTEROL [Concomitant]

REACTIONS (2)
  - ASTHMA [None]
  - WEIGHT INCREASED [None]
